FAERS Safety Report 24572896 (Version 1)
Quarter: 2024Q4

REPORT INFORMATION
  Report Type: Spontaneous
  Country: US (occurrence: US)
  Receive Date: 20241101
  Receipt Date: 20241101
  Transmission Date: 20250115
  Serious: Yes (Life-Threatening, Hospitalization, Other)
  Sender: JOHNSON AND JOHNSON
  Company Number: US-JNJFOC-20241071780

PATIENT
  Sex: Female

DRUGS (1)
  1. XARELTO [Suspect]
     Active Substance: RIVAROXABAN
     Indication: Product used for unknown indication
     Route: 048
     Dates: start: 20170316, end: 20200802

REACTIONS (11)
  - Cerebral haemorrhage [Unknown]
  - Respiratory failure [Unknown]
  - Pyrexia [Unknown]
  - Joint dislocation [Unknown]
  - Adverse event [Unknown]
  - Generalised oedema [Unknown]
  - Contusion [Unknown]
  - Vomiting [Unknown]
  - Choking [Unknown]
  - Weight decreased [Unknown]
  - Pallor [Unknown]

NARRATIVE: CASE EVENT DATE: 20200802
